FAERS Safety Report 7286157-6 (Version None)
Quarter: 2011Q1

REPORT INFORMATION
  Report Type: 
  Country: None (occurrence: None)
  Receive Date: 20110210
  Receipt Date: 20110201
  Transmission Date: 20110831
  Serious: Yes (Hospitalization)
  Sender: FDA-Public Use
  Company Number: US-JNJCH-2011003110

PATIENT
  Age: 60 Year
  Sex: Male
  Weight: 106.6 kg

DRUGS (3)
  1. ROGAINE [Suspect]
     Indication: ALOPECIA
     Dosage: TEXT:HALF CAPFUL TWICE DAILY
     Route: 061
     Dates: start: 20101125, end: 20101201
  2. ACETYLSALICYLIC ACID [Concomitant]
     Indication: BLOOD DISORDER
     Dosage: TEXT:ONE TAB PER DAY
     Route: 048
  3. MULTI-VITAMINS [Concomitant]
     Indication: VITAMIN SUPPLEMENTATION
     Dosage: TEXT:ONE TAB PER DAY
     Route: 048

REACTIONS (2)
  - HEART RATE INCREASED [None]
  - CHEST PAIN [None]
